FAERS Safety Report 8197059-5 (Version None)
Quarter: 2012Q1

REPORT INFORMATION
  Report Type: 
  Country: None (occurrence: None)
  Receive Date: 20120227
  Receipt Date: 20120119
  Transmission Date: 20120608
  Serious: Yes (Hospitalization)
  Sender: FDA-Public Use
  Company Number: 339643

PATIENT
  Age: 63 Year
  Sex: Male
  Weight: 135 kg

DRUGS (14)
  1. LEVEMIR [Concomitant]
  2. LOVAZA [Concomitant]
  3. ALBUTEROL [Concomitant]
  4. SU-TUSS DM (DEXTROMETHORPHAN HYDROBROMIDE, GUAIFENESIN) [Concomitant]
  5. TRILIPIX [Concomitant]
  6. LASIX [Concomitant]
  7. CRESTOR [Concomitant]
  8. METFORMIN HCL [Concomitant]
  9. METOPROLOL SUCCINATE [Concomitant]
  10. LISINOPRIL [Concomitant]
  11. LOVAZA [Concomitant]
  12. TRIPLEX (TRIFLUOPERAZINE HYDROCHLORIDE) [Concomitant]
  13. VICTOZA [Suspect]
     Indication: TYPE 1 DIABETES MELLITUS
     Dosage: 1.8 MG, QD, SUBCUTANEOUS; 0.6 MG, QD, SUBCUTANEOUS; 1.2 MG, QD, SUBCUTANEOUS
     Route: 058
     Dates: start: 20111026, end: 20111116
  14. VICTOZA [Suspect]
     Indication: TYPE 1 DIABETES MELLITUS
     Dosage: 1.8 MG, QD, SUBCUTANEOUS; 0.6 MG, QD, SUBCUTANEOUS; 1.2 MG, QD, SUBCUTANEOUS
     Route: 058
     Dates: start: 20110518

REACTIONS (1)
  - PANCREATITIS ACUTE [None]
